FAERS Safety Report 9648583 (Version 1)
Quarter: 2013Q4

REPORT INFORMATION
  Report Type: Spontaneous
  Country: FR (occurrence: FR)
  Receive Date: 20131028
  Receipt Date: 20131028
  Transmission Date: 20140711
  Serious: Yes (Other)
  Sender: FDA-Public Use
  Company Number: FR-PFIZER INC-2013301377

PATIENT
  Age: 69 Year
  Sex: Female

DRUGS (2)
  1. XALATAN [Suspect]
     Dosage: 1 DF, 1X/DAY
     Dates: start: 201307, end: 201310
  2. XALATAN [Suspect]
     Dosage: 1 DF, 1X/DAY
     Dates: start: 201310, end: 20131019

REACTIONS (7)
  - Skin exfoliation [Recovering/Resolving]
  - Eye swelling [Recovering/Resolving]
  - Ocular hyperaemia [Recovering/Resolving]
  - Rash vesicular [Recovering/Resolving]
  - Rash macular [Recovering/Resolving]
  - Pain [Unknown]
  - Sleep disorder [Unknown]
